FAERS Safety Report 5634995-5 (Version None)
Quarter: 2008Q1

REPORT INFORMATION
  Report Type: 
  Country: None (occurrence: None)
  Receive Date: 20080222
  Receipt Date: 20080218
  Transmission Date: 20080703
  Serious: Yes (Other)
  Sender: FDA-Public Use
  Company Number: PHNU2008DE01016

PATIENT
  Age: 61 Year
  Sex: Female

DRUGS (1)
  1. RASILEZ [Suspect]
     Dosage: 1 DF, QD
     Route: 048
     Dates: start: 20070915, end: 20070918

REACTIONS (8)
  - ABDOMINAL PAIN [None]
  - BRONCHOSPASM [None]
  - DIARRHOEA [None]
  - FOOD ALLERGY [None]
  - HYPERSENSITIVITY [None]
  - NAUSEA [None]
  - PHARYNGEAL OEDEMA [None]
  - SKIN DISORDER [None]
